FAERS Safety Report 24244761 (Version 1)
Quarter: 2024Q3

REPORT INFORMATION
  Report Type: Spontaneous
  Country: US (occurrence: US)
  Receive Date: 20240823
  Receipt Date: 20240823
  Transmission Date: 20241017
  Serious: No
  Sender: GLAXOSMITHKLINE
  Company Number: US-GSK-US2024AMR103314

PATIENT
  Sex: Female

DRUGS (1)
  1. ZEJULA [Suspect]
     Active Substance: NIRAPARIB
     Indication: Uterine cancer
     Dosage: 200 MG, QD
     Route: 048
     Dates: start: 20240715

REACTIONS (7)
  - Depression [Unknown]
  - Platelet count decreased [Unknown]
  - Arthralgia [Unknown]
  - Back pain [Unknown]
  - Feeling abnormal [Unknown]
  - Pruritus [Unknown]
  - Ear pain [Unknown]

NARRATIVE: CASE EVENT DATE: 20240805
